FAERS Safety Report 8052255-2 (Version None)
Quarter: 2012Q1

REPORT INFORMATION
  Report Type: 
  Country: None (occurrence: None)
  Receive Date: 20120118
  Receipt Date: 20120111
  Transmission Date: 20120608
  Serious: Yes (Other)
  Sender: FDA-Public Use
  Company Number: JP-JNJFOC-20120101933

PATIENT
  Age: 2 Year
  Sex: Female

DRUGS (2)
  1. IMMUNE GLOBULIN INTRAVENOUS (HUMAN) [Concomitant]
     Route: 065
  2. REMICADE [Suspect]
     Indication: KAWASAKI'S DISEASE
     Route: 042

REACTIONS (1)
  - ARTHRITIS [None]
